FAERS Safety Report 8136061-6 (Version None)
Quarter: 2012Q1

REPORT INFORMATION
  Report Type: 
  Country: None (occurrence: None)
  Receive Date: 20120214
  Receipt Date: 20120130
  Transmission Date: 20120608
  Serious: Yes (Hospitalization)
  Sender: FDA-Public Use
  Company Number: US-ARROW GEN-2012-01945

PATIENT
  Age: 57 Year
  Sex: Male

DRUGS (1)
  1. GABAPENTIN [Suspect]
     Indication: PRODUCT USED FOR UNKNOWN INDICATION
     Dosage: 900 MG, DAILY

REACTIONS (4)
  - RENAL FAILURE ACUTE [None]
  - METABOLIC FUNCTION TEST ABNORMAL [None]
  - MYOCLONUS [None]
  - TOXICITY TO VARIOUS AGENTS [None]
